FAERS Safety Report 8048575-8 (Version None)
Quarter: 2012Q1

REPORT INFORMATION
  Report Type: 
  Country: None (occurrence: None)
  Receive Date: 20120117
  Receipt Date: 20120111
  Transmission Date: 20120608
  Serious: Yes (Other)
  Sender: FDA-Public Use
  Company Number: US-BRISTOL-MYERS SQUIBB COMPANY-16345274

PATIENT
  Age: 56 Year
  Sex: Female

DRUGS (1)
  1. ERBITUX [Suspect]
     Dosage: HAS BEEN WITH 70 DAYS PLANS TO RESTART
     Dates: start: 20110401

REACTIONS (4)
  - SPINAL CORD COMPRESSION [None]
  - VERTIGO [None]
  - NEUROPATHY PERIPHERAL [None]
  - DEVICE RELATED INFECTION [None]
